FAERS Safety Report 6906617-4 (Version None)
Quarter: 2010Q3

REPORT INFORMATION
  Report Type: 
  Country: None (occurrence: None)
  Receive Date: 20100804
  Receipt Date: 20100723
  Transmission Date: 20110219
  Serious: Yes (Hospitalization)
  Sender: FDA-Public Use
  Company Number: FR-JNJFOC-20100800246

PATIENT
  Sex: Male

DRUGS (12)
  1. IBUPROFEN [Suspect]
     Indication: BONE PAIN
     Route: 065
  2. ALDACTONE [Suspect]
     Indication: HYPERTENSION
     Route: 048
  3. KARDEGIC [Suspect]
     Indication: PRODUCT USED FOR UNKNOWN INDICATION
     Route: 065
  4. KARDEGIC [Suspect]
     Route: 065
  5. PERINDOPRIL ERBUMINE [Suspect]
     Indication: HYPERTENSION
     Route: 065
  6. PERINDOPRIL ERBUMINE [Suspect]
     Route: 065
  7. LASIX [Suspect]
     Indication: HYPERTENSION
     Route: 065
  8. LASIX [Suspect]
     Route: 065
  9. TOPALGIC [Suspect]
     Indication: BONE PAIN
     Route: 065
  10. TAHOR [Concomitant]
     Indication: PRODUCT USED FOR UNKNOWN INDICATION
     Route: 065
  11. BISOPROLOL [Concomitant]
     Indication: HYPERTENSION
     Route: 065
  12. MODOPAR [Concomitant]
     Indication: PRODUCT USED FOR UNKNOWN INDICATION
     Route: 065

REACTIONS (3)
  - HYPERKALAEMIA [None]
  - METABOLIC ACIDOSIS [None]
  - RENAL FAILURE ACUTE [None]
